FAERS Safety Report 9050510 (Version 2)
Quarter: 2013Q1

REPORT INFORMATION
  Report Type: Spontaneous
  Country: US (occurrence: US)
  Receive Date: 20130205
  Receipt Date: 20130329
  Transmission Date: 20140127
  Serious: Yes (Hospitalization, Other)
  Sender: FDA-Public Use
  Company Number: US-009507513-2011SP006199

PATIENT
  Sex: Female
  Weight: 86.18 kg

DRUGS (2)
  1. NUVARING [Suspect]
     Indication: MUSCLE SPASMS
     Route: 067
     Dates: start: 200806, end: 200901
  2. NUVARING [Suspect]
     Indication: MENORRHAGIA

REACTIONS (8)
  - Deep vein thrombosis [Recovering/Resolving]
  - Pulmonary embolism [Recovering/Resolving]
  - Off label use [Unknown]
  - Urinary tract infection enterococcal [Unknown]
  - Streptococcal urinary tract infection [Unknown]
  - Headache [Unknown]
  - Migraine [Recovering/Resolving]
  - Sleep disorder [Unknown]
